FAERS Safety Report 24610227 (Version 2)
Quarter: 2024Q4

REPORT INFORMATION
  Report Type: Spontaneous
  Country: NL (occurrence: NL)
  Receive Date: 20241112
  Receipt Date: 20241126
  Transmission Date: 20250115
  Serious: Yes (Hospitalization)
  Sender: JUBILANT
  Company Number: None

PATIENT
  Age: 30 Year
  Sex: Female
  Weight: 71 kg

DRUGS (5)
  1. OLANZAPINE [Suspect]
     Active Substance: OLANZAPINE
     Indication: Adverse drug reaction
     Dosage: 2.5 MG, DOSES OF 2.5 -5-7.5-10-15 WERE USED
     Dates: start: 19991101
  2. OLANZAPINE [Suspect]
     Active Substance: OLANZAPINE
     Dosage: 5 MG, DOSES OF 2.5 -5-7.5-10-15 WERE USED
  3. OLANZAPINE [Suspect]
     Active Substance: OLANZAPINE
     Dosage: 7.5 MG, DOSES OF 2.5 -5-7.5-10-15 WERE USED
  4. OLANZAPINE [Suspect]
     Active Substance: OLANZAPINE
     Dosage: 10 MG, DOSES OF 2.5 -5-7.5-10-15 WERE USED
  5. OLANZAPINE [Suspect]
     Active Substance: OLANZAPINE
     Dosage: 15 MG, DOSES OF 2.5 -5-7.5-10-15 WERE USED

REACTIONS (4)
  - Sexually inappropriate behaviour [Recovered/Resolved]
  - Speech disorder [Recovered/Resolved]
  - Memory impairment [Recovered/Resolved]
  - Orgasm abnormal [Unknown]
